FAERS Safety Report 8778710 (Version 1)
Quarter: 2012Q4

REPORT INFORMATION
  Report Type: Report from Study
  Country: US (occurrence: US)
  Receive Date: 20120913
  Receipt Date: 20120913
  Transmission Date: 20130627
  Serious: Yes (Life-Threatening, Hospitalization)
  Sender: FDA-Public Use
  Company Number: US-ROCHE-1112282

PATIENT
  Age: 79 Year
  Sex: Female
  Weight: 63.95 kg

DRUGS (14)
  1. AVASTIN [Suspect]
     Indication: NON-SMALL CELL LUNG CANCER
     Route: 042
     Dates: start: 20091217, end: 20100128
  2. PACLITAXEL [Suspect]
     Indication: NON-SMALL CELL LUNG CANCER
     Route: 042
     Dates: start: 20091217, end: 20100128
  3. CARBOPLATIN [Suspect]
     Indication: NON-SMALL CELL LUNG CANCER
     Dosage: 6 D/f
     Route: 042
     Dates: start: 20091217, end: 20100128
  4. OXYCONTIN [Concomitant]
     Route: 065
     Dates: start: 20091217
  5. FOSAMAX [Concomitant]
     Route: 065
     Dates: start: 20091102, end: 20091211
  6. FOLIC ACID [Concomitant]
     Route: 065
     Dates: start: 20091210, end: 20091217
  7. PRILOSEC [Concomitant]
     Route: 065
     Dates: start: 20091204
  8. DEXAMETHASONE [Concomitant]
     Route: 065
     Dates: start: 20091216
  9. PREDNISONE [Concomitant]
     Route: 065
     Dates: start: 20091102
  10. LISINOPRIL [Concomitant]
     Route: 065
     Dates: start: 20091102
  11. REGLAN [Concomitant]
     Route: 065
     Dates: start: 20091204
  12. CENTRUM [Concomitant]
     Route: 065
     Dates: start: 20091208
  13. FORTICAL (UNITED STATES) [Concomitant]
     Route: 065
     Dates: start: 20091202, end: 20091211
  14. VICODIN [Concomitant]

REACTIONS (3)
  - Cerebrovascular accident [Not Recovered/Not Resolved]
  - Encephalopathy [Not Recovered/Not Resolved]
  - Meningitis herpes [Not Recovered/Not Resolved]
